FAERS Safety Report 6371527-0 (Version None)
Quarter: 2009Q3

REPORT INFORMATION
  Report Type: 
  Country: None (occurrence: None)
  Receive Date: 20090923
  Receipt Date: 20071119
  Transmission Date: 20100115
  Serious: Yes (Hospitalization)
  Sender: FDA-Public Use
  Company Number: US-ASTRAZENECA-2007UW19695

PATIENT
  Age: 20779 Day
  Sex: Female
  Weight: 79.8 kg

DRUGS (26)
  1. SEROQUEL [Suspect]
     Indication: BIPOLAR DISORDER
     Dosage: 150 TO 200 MG
     Route: 048
     Dates: start: 19970101, end: 20060215
  2. SEROQUEL [Suspect]
     Indication: SCHIZOPHRENIA
     Dosage: 150 TO 200 MG
     Route: 048
     Dates: start: 19970101, end: 20060215
  3. SEROQUEL [Suspect]
     Dosage: 25 MG - 200 MG
     Route: 048
     Dates: start: 20031217
  4. SEROQUEL [Suspect]
     Dosage: 25 MG - 200 MG
     Route: 048
     Dates: start: 20031217
  5. PAXIL [Concomitant]
  6. HUMULIN R [Concomitant]
  7. GLUCOPHAGE [Concomitant]
  8. HEPARIN [Concomitant]
  9. ZOLOFT [Concomitant]
  10. RISPERDAL [Concomitant]
  11. DEPAKOTE [Concomitant]
  12. AVANDIA [Concomitant]
  13. NOVOLIN R [Concomitant]
  14. CIPROFLAXACIN [Concomitant]
  15. LISINOPRIL [Concomitant]
  16. LORAZEPAM [Concomitant]
  17. ACETAMINOPHEN [Concomitant]
  18. MIRTAZAPINE [Concomitant]
  19. DILTIAZEM [Concomitant]
  20. METOPROLOL TARTRATE [Concomitant]
  21. LIPITOR [Concomitant]
  22. AZITHROMYCIN [Concomitant]
  23. BENZTROPINE MESYLATE [Concomitant]
  24. INVEGA [Concomitant]
  25. ROXICET [Concomitant]
  26. DIOVAN [Concomitant]

REACTIONS (2)
  - DIABETES MELLITUS [None]
  - TYPE 2 DIABETES MELLITUS [None]
